FAERS Safety Report 8000441 (Version 5)
Quarter: 2012Q4

REPORT INFORMATION
  Report Type: 
  Country: US (occurrence: US)
  Receive Date: 20110621
  Receipt Date: 20121022
  Transmission Date: 20130627
  Serious: Yes (Other)
  Sender: FDA-Public Use
  Company Number: US-ASTRAZENECA-2010SE23864

PATIENT
  Age: 73 Year
  Sex: Male

DRUGS (4)
  1. ATACAND [Suspect]
     Route: 048
  2. TOPROL XL [Suspect]
     Route: 048
  3. CRESTOR [Suspect]
     Route: 048
  4. WATER PILL [Concomitant]

REACTIONS (21)
  - Blindness unilateral [Unknown]
  - Heart valve incompetence [Unknown]
  - Road traffic accident [Unknown]
  - Nephrolithiasis [Unknown]
  - Rib fracture [Unknown]
  - Fall [Unknown]
  - Blood creatine decreased [Unknown]
  - Bone disorder [Unknown]
  - Neoplasm [Unknown]
  - Diabetes mellitus [Unknown]
  - Tooth fracture [Unknown]
  - Cardiac disorder [Unknown]
  - Blood glucose increased [Unknown]
  - Blood glucose decreased [Unknown]
  - Polyp [Unknown]
  - Pericardial fibrosis [Unknown]
  - Retinal scar [Unknown]
  - Influenza [Unknown]
  - Blood cholesterol increased [Unknown]
  - Photopsia [Unknown]
  - Dizziness [Unknown]
